FAERS Safety Report 15770926 (Version 2)
Quarter: 2019Q2

REPORT INFORMATION
  Report Type: Spontaneous
  Country: JP (occurrence: JP)
  Receive Date: 20181228
  Receipt Date: 20190520
  Transmission Date: 20190711
  Serious: Yes (Other)
  Sender: FDA-Public Use
  Company Number: JP-GLAXOSMITHKLINE-JP2018JPN232381

PATIENT
  Age: 6 Decade
  Sex: Male

DRUGS (1)
  1. LAMICTAL [Suspect]
     Active Substance: LAMOTRIGINE
     Dosage: 8000 MG, UNK
     Route: 048

REACTIONS (3)
  - Overdose [Unknown]
  - Product use issue [Unknown]
  - Altered state of consciousness [Recovering/Resolving]
